FAERS Safety Report 18088591 (Version 1)
Quarter: 2020Q3

REPORT INFORMATION
  Report Type: Spontaneous
  Country: US (occurrence: US)
  Receive Date: 20200729
  Receipt Date: 20200729
  Transmission Date: 20201103
  Serious: No
  Sender: FDA-Public Use
  Company Number: US-BAYER-2020-144748

PATIENT
  Age: 27 Year
  Sex: Female

DRUGS (1)
  1. MIRENA [Suspect]
     Active Substance: LEVONORGESTREL
     Dosage: 20 ?G PER DAY CONTINUOUSLY
     Route: 015
     Dates: start: 20200716, end: 20200716

REACTIONS (4)
  - Device use issue [None]
  - Complication of device insertion [None]
  - Device deployment issue [None]
  - Post procedural discomfort [None]

NARRATIVE: CASE EVENT DATE: 20200716
